FAERS Safety Report 8528597-0 (Version None)
Quarter: 2012Q3

REPORT INFORMATION
  Report Type: 
  Country: None (occurrence: None)
  Receive Date: 20120723
  Receipt Date: 20120711
  Transmission Date: 20120928
  Serious: Yes (Other)
  Sender: FDA-Public Use
  Company Number: US-BIOGENIDEC-2012BI025030

PATIENT
  Age: 55 Year
  Sex: Female

DRUGS (3)
  1. AVONEX [Suspect]
     Indication: MULTIPLE SCLEROSIS
     Route: 030
     Dates: start: 19991201, end: 20030801
  2. AVONEX [Suspect]
     Route: 030
     Dates: start: 20060801
  3. AVONEX [Suspect]
     Route: 030
     Dates: start: 20030801, end: 20060703

REACTIONS (13)
  - GASTROINTESTINAL DISORDER [None]
  - MYALGIA [None]
  - HEPATIC STEATOSIS [None]
  - LIVER DISORDER [None]
  - FALL [None]
  - ARTHRALGIA [None]
  - HEPATIC CIRRHOSIS [None]
  - MENISCUS LESION [None]
  - MUSCULAR WEAKNESS [None]
  - CARTILAGE INJURY [None]
  - MULTIPLE SCLEROSIS [None]
  - BARRETT'S OESOPHAGUS [None]
  - HEADACHE [None]
